FAERS Safety Report 19555143 (Version 1)
Quarter: 2021Q3

REPORT INFORMATION
  Report Type: Spontaneous
  Country: US (occurrence: US)
  Receive Date: 20210716
  Receipt Date: 20210716
  Transmission Date: 20211014
  Serious: No
  Sender: FDA-Public Use
  Company Number: US-ORGANON-O2107USA001100

PATIENT
  Age: 63 Year
  Sex: Female
  Weight: 47.62 kg

DRUGS (13)
  1. INBRIJA [Concomitant]
     Active Substance: LEVODOPA
  2. VITAMIN D3 [Concomitant]
     Active Substance: CHOLECALCIFEROL
  3. ZETIA [Suspect]
     Active Substance: EZETIMIBE
     Indication: BLOOD CHOLESTEROL
     Dosage: UNK
     Route: 048
  4. ROPINIROLE. [Concomitant]
     Active Substance: ROPINIROLE
  5. CLONAZEPAM. [Concomitant]
     Active Substance: CLONAZEPAM
  6. VITAMIN B12 [Concomitant]
     Active Substance: CYANOCOBALAMIN
  7. AMANTADINE. [Concomitant]
     Active Substance: AMANTADINE HYDROCHLORIDE
  8. PAROXETINE. [Concomitant]
     Active Substance: PAROXETINE
  9. CYCLOBENZAPRINE. [Concomitant]
     Active Substance: CYCLOBENZAPRINE
  10. QUETIAPINE. [Concomitant]
     Active Substance: QUETIAPINE
  11. SINEMET [Suspect]
     Active Substance: CARBIDOPA\LEVODOPA
     Dosage: 5 TIMES/DAY
     Route: 048
  12. GOCOVRI [Concomitant]
     Active Substance: AMANTADINE
  13. MELATONIN [Concomitant]
     Active Substance: MELATONIN

REACTIONS (2)
  - Panic attack [Unknown]
  - Movement disorder [Unknown]

NARRATIVE: CASE EVENT DATE: 202103
